FAERS Safety Report 4463318-2 (Version None)
Quarter: 2004Q3

REPORT INFORMATION
  Report Type: 
  Country: None (occurrence: None)
  Receive Date: 20040930
  Receipt Date: 20040924
  Transmission Date: 20050211
  Serious: Yes (Hospitalization)
  Sender: FDA-Public Use
  Company Number: JP-JNJFOC-20040706485

PATIENT
  Sex: Female
  Weight: 49 kg

DRUGS (27)
  1. REMICADE [Suspect]
     Dosage: 4TH ADMINISTRATION
     Route: 042
  2. REMICADE [Suspect]
     Route: 042
  3. REMICADE [Suspect]
     Route: 042
  4. REMICADE [Suspect]
     Indication: RHEUMATOID ARTHRITIS
     Route: 042
  5. RHEUMATREX [Suspect]
     Indication: RHEUMATOID ARTHRITIS
     Route: 049
  6. VOLTAREN-XR [Suspect]
     Indication: RHEUMATOID ARTHRITIS
  7. CYOTEC [Suspect]
     Indication: DRUG USE FOR UNKNOWN INDICATION
     Route: 049
  8. PREDONIN [Suspect]
     Indication: RHEUMATOID ARTHRITIS
     Route: 049
  9. FARNEZONE [Concomitant]
     Indication: RHEUMATOID ARTHRITIS
  10. RIMATIL [Concomitant]
     Indication: RHEUMATOID ARTHRITIS
     Route: 049
  11. SERASTAR [Concomitant]
     Indication: RHEUMATOID ARTHRITIS
  12. STICKZENOL A [Concomitant]
     Indication: RHEUMATOID ARTHRITIS
  13. INDOMETHACIN [Concomitant]
     Indication: RHEUMATOID ARTHRITIS
  14. SUVENYL [Concomitant]
     Indication: RHEUMATOID ARTHRITIS
  15. FOLIAMIN [Concomitant]
     Route: 049
  16. LAXOBERON [Concomitant]
     Route: 049
  17. SP TROACHES [Concomitant]
     Route: 049
  18. VITAMEDIN [Concomitant]
     Route: 049
  19. VITAMEDIN [Concomitant]
     Route: 049
  20. VITAMEDIN [Concomitant]
     Route: 049
  21. CEREKINON [Concomitant]
     Route: 049
  22. ASPARA CA [Concomitant]
     Route: 049
  23. JUVELA [Concomitant]
     Route: 049
  24. MAGNESIUM OXIDE [Concomitant]
     Route: 049
  25. ROCALTROL [Concomitant]
     Route: 049
  26. OMEPRAL [Concomitant]
     Route: 049
  27. EURODIN [Concomitant]
     Route: 049

REACTIONS (1)
  - ENTERITIS [None]
